FAERS Safety Report 14036375 (Version 1)
Quarter: 2017Q4

REPORT INFORMATION
  Report Type: Spontaneous
  Country: US (occurrence: US)
  Receive Date: 20171003
  Receipt Date: 20171003
  Transmission Date: 20180321
  Serious: No
  Sender: FDA-Public Use
  Company Number: US-ROCHE-1988539

PATIENT
  Sex: Male

DRUGS (1)
  1. OCREVUS [Suspect]
     Active Substance: OCRELIZUMAB
     Indication: MULTIPLE SCLEROSIS RELAPSE
     Route: 065

REACTIONS (6)
  - Ill-defined disorder [Unknown]
  - Stress [Unknown]
  - Tremor [Recovering/Resolving]
  - Gait inability [Unknown]
  - Musculoskeletal disorder [Unknown]
  - Back pain [Recovering/Resolving]
